FAERS Safety Report 5379278-6 (Version None)
Quarter: 2007Q3

REPORT INFORMATION
  Report Type: 
  Country: None (occurrence: None)
  Receive Date: 20070705
  Receipt Date: 20070626
  Transmission Date: 20080115
  Serious: Yes (Death, Other)
  Sender: FDA-Public Use
  Company Number: AR-PFIZER INC-2007042688

PATIENT
  Age: 70 Year
  Sex: Male

DRUGS (5)
  1. SUTENT [Suspect]
     Indication: RENAL CELL CARCINOMA STAGE UNSPECIFIED
     Route: 048
  2. TEOSONA [Concomitant]
  3. DRUG, UNSPECIFIED [Concomitant]
  4. OMEPRAZOLE [Concomitant]
  5. ALPRAZOLAM [Concomitant]

REACTIONS (4)
  - ASTHENIA [None]
  - DEATH [None]
  - HAEMATOCHEZIA [None]
  - YELLOW SKIN [None]
